FAERS Safety Report 26100390 (Version 1)
Quarter: 2025Q4

REPORT INFORMATION
  Report Type: Spontaneous
  Country: TW (occurrence: TW)
  Receive Date: 20251128
  Receipt Date: 20251128
  Transmission Date: 20260118
  Serious: Yes (Other)
  Sender: ALKEM
  Company Number: TW-ALKEM LABORATORIES LIMITED-TW-ALKEM-2025-12839

PATIENT
  Age: 87 Year
  Sex: Male

DRUGS (2)
  1. LIDOCAINE [Suspect]
     Active Substance: LIDOCAINE
     Indication: Pain management
     Dosage: 200 MILLIGRAM
     Route: 061
  2. LIDOCAINE [Suspect]
     Active Substance: LIDOCAINE
     Dosage: UNK (INTRAURETHRAL)
     Route: 065

REACTIONS (3)
  - Generalised tonic-clonic seizure [Unknown]
  - Local anaesthetic systemic toxicity [Unknown]
  - Cardiac arrest [Unknown]
